FAERS Safety Report 8907526 (Version 2)
Quarter: 2012Q4

REPORT INFORMATION
  Report Type: 
  Country: US (occurrence: US)
  Receive Date: 20121114
  Receipt Date: 20121122
  Transmission Date: 20130627
  Serious: Yes (Other)
  Sender: FDA-Public Use
  Company Number: US-BIOGENIDEC-2012BI050769

PATIENT
  Age: 58 Year
  Sex: Female

DRUGS (4)
  1. AVONEX [Suspect]
     Indication: MULTIPLE SCLEROSIS
     Route: 030
     Dates: start: 19981201
  2. BETASERON [Concomitant]
  3. COPAXONE [Concomitant]
  4. ASPIRIN [Concomitant]
     Dates: start: 201209

REACTIONS (13)
  - Thrombosis [Unknown]
  - Transient ischaemic attack [Recovered/Resolved]
  - Dysarthria [Recovered/Resolved]
  - Lower limb fracture [Not Recovered/Not Resolved]
  - Contusion [Unknown]
  - Swelling face [Recovered/Resolved]
  - Injury [Recovered/Resolved]
  - Upper limb fracture [Unknown]
  - Fall [Recovered/Resolved]
  - Head injury [Unknown]
  - Depressed mood [Recovered/Resolved]
  - Pain in extremity [Not Recovered/Not Resolved]
  - Arthralgia [Unknown]
